FAERS Safety Report 14977315 (Version 1)
Quarter: 2018Q2

REPORT INFORMATION
  Report Type: Spontaneous
  Country: US (occurrence: US)
  Receive Date: 20180606
  Receipt Date: 20180606
  Transmission Date: 20180711
  Serious: No
  Sender: FDA-Public Use
  Company Number: US-BRISTOL-MYERS SQUIBB COMPANY-BMS-2018-051138

PATIENT
  Sex: Female

DRUGS (1)
  1. ABATACEPT [Suspect]
     Active Substance: ABATACEPT
     Indication: PRODUCT USED FOR UNKNOWN INDICATION
     Route: 058

REACTIONS (7)
  - Condition aggravated [Unknown]
  - Fatigue [Unknown]
  - Parosmia [Unknown]
  - Dysgeusia [Unknown]
  - Pain [Unknown]
  - Decreased appetite [Unknown]
  - Peripheral swelling [Unknown]
